FAERS Safety Report 9270274 (Version 1)
Quarter: 2013Q2

REPORT INFORMATION
  Report Type: Spontaneous
  Country: FR (occurrence: FR)
  Receive Date: 20130503
  Receipt Date: 20130503
  Transmission Date: 20140414
  Serious: Yes (Hospitalization)
  Sender: FDA-Public Use
  Company Number: FR-BAYER-2013-054909

PATIENT
  Age: 41 Year
  Sex: Female

DRUGS (3)
  1. JASMINE [Suspect]
     Indication: CONTRACEPTION
     Dosage: UNK
     Route: 048
     Dates: start: 200704, end: 20070725
  2. PROZAC [Suspect]
     Dosage: UNK
     Route: 048
     Dates: end: 200707
  3. STILNOX [Concomitant]

REACTIONS (3)
  - Cerebral venous thrombosis [Recovered/Resolved with Sequelae]
  - Speech disorder [Recovered/Resolved with Sequelae]
  - Epilepsy [Recovered/Resolved with Sequelae]
